FAERS Safety Report 5102338-1 (Version None)
Quarter: 2006Q3

REPORT INFORMATION
  Report Type: 
  Country: None (occurrence: None)
  Receive Date: 20060907
  Receipt Date: 20060829
  Transmission Date: 20061208
  Serious: Yes (Death)
  Sender: FDA-Public Use
  Company Number: 2006P1000430

PATIENT
  Age: 17 Year
  Sex: Male

DRUGS (1)
  1. RETEVASE [Suspect]
     Indication: PULMONARY EMBOLISM

REACTIONS (11)
  - CARDIAC ARREST [None]
  - CHEST PAIN [None]
  - DILATATION VENTRICULAR [None]
  - DYSPNOEA EXERTIONAL [None]
  - HAEMODYNAMIC INSTABILITY [None]
  - HYPOXIA [None]
  - PULMONARY ARTERIAL PRESSURE INCREASED [None]
  - PULMONARY EMBOLISM [None]
  - SUBCLAVIAN VEIN THROMBOSIS [None]
  - SYNCOPE [None]
  - VENTRICULAR HYPOKINESIA [None]
